FAERS Safety Report 12632129 (Version 2)
Quarter: 2016Q3

REPORT INFORMATION
  Report Type: Spontaneous
  Country: US (occurrence: US)
  Receive Date: 20160808
  Receipt Date: 20160808
  Transmission Date: 20161109
  Serious: No
  Sender: FDA-Public Use
  Company Number: US-BEH-2016061948

PATIENT
  Sex: Female
  Weight: 63 kg

DRUGS (16)
  1. LMX [Concomitant]
     Active Substance: LIDOCAINE
  2. ALLEGRA [Concomitant]
     Active Substance: FEXOFENADINE HYDROCHLORIDE
  3. EPIPEN [Concomitant]
     Active Substance: EPINEPHRINE
  4. SYNTHROID [Concomitant]
     Active Substance: LEVOTHYROXINE SODIUM
  5. MULTIVITAMIN [Concomitant]
     Active Substance: VITAMINS
  6. DIPHENHYDRAMINE. [Concomitant]
     Active Substance: DIPHENHYDRAMINE
  7. LIDOCAINE/PRILOCAINE [Concomitant]
     Active Substance: LIDOCAINE\PRILOCAINE
  8. PRED FORTE [Concomitant]
     Active Substance: PREDNISOLONE ACETATE
  9. ZIRGAN [Concomitant]
     Active Substance: GANCICLOVIR
  10. FLONASE [Concomitant]
     Active Substance: FLUTICASONE PROPIONATE
  11. ZOLOFT [Concomitant]
     Active Substance: SERTRALINE HYDROCHLORIDE
  12. FLOVENT [Concomitant]
     Active Substance: FLUTICASONE PROPIONATE
  13. HIZENTRA [Suspect]
     Active Substance: HUMAN IMMUNOGLOBULIN G
     Indication: IMMUNODEFICIENCY COMMON VARIABLE
     Route: 058
     Dates: start: 20101117
  14. CELEBREX [Concomitant]
     Active Substance: CELECOXIB
  15. CALCIUM [Concomitant]
     Active Substance: CALCIUM
  16. FLAX SEED [Concomitant]
     Active Substance: FLAX SEED

REACTIONS (1)
  - Sinusitis [Unknown]
